FAERS Safety Report 6050121-5 (Version None)
Quarter: 2009Q1

REPORT INFORMATION
  Report Type: 
  Country: None (occurrence: None)
  Receive Date: 20090121
  Receipt Date: 20090109
  Transmission Date: 20090719
  Serious: Yes (Hospitalization, Other)
  Sender: FDA-Public Use
  Company Number: 2009-00069

PATIENT
  Age: 59 Year
  Sex: Female

DRUGS (2)
  1. VELCADE [Suspect]
     Indication: MULTIPLE MYELOMA
     Dosage: 1.3 MG, INTRAVENOUS
     Route: 042
     Dates: end: 20081226
  2. DEXAMETHASONE [Concomitant]

REACTIONS (4)
  - DYSPNOEA [None]
  - LOCAL SWELLING [None]
  - SWELLING [None]
  - TRACHEAL DEVIATION [None]
